FAERS Safety Report 18714862 (Version 1)
Quarter: 2021Q1

REPORT INFORMATION
  Report Type: Spontaneous
  Country: CN (occurrence: CN)
  Receive Date: 20210107
  Receipt Date: 20210107
  Transmission Date: 20210419
  Serious: Yes (Other)
  Sender: FDA-Public Use
  Company Number: CN-BAXTER-2021BAX000184

PATIENT
  Age: 83 Year
  Sex: Male

DRUGS (3)
  1. 20% MANNITOL INJECTION [Suspect]
     Active Substance: MANNITOL
     Indication: BRAIN OEDEMA
  2. 20% MANNITOL INJECTION [Suspect]
     Active Substance: MANNITOL
     Indication: REDUCTION OF INCREASED INTRACRANIAL PRESSURE
     Dosage: DOSE RE?INTRODUCED.
     Route: 041
     Dates: start: 202012
  3. 20% MANNITOL INJECTION [Suspect]
     Active Substance: MANNITOL
     Indication: DIURETIC THERAPY
     Dosage: Q12H
     Route: 041
     Dates: start: 20201209, end: 20201211

REACTIONS (1)
  - Renal impairment [Recovered/Resolved]

NARRATIVE: CASE EVENT DATE: 20201211
